FAERS Safety Report 20974152 (Version 1)
Quarter: 2022Q2

REPORT INFORMATION
  Report Type: Report from Study
  Country: DE (occurrence: DE)
  Receive Date: 20220617
  Receipt Date: 20220617
  Transmission Date: 20220720
  Serious: Yes (Hospitalization, Other)
  Sender: FDA-Public Use
  Company Number: DE-ELI_LILLY_AND_COMPANY-DE202203010810

PATIENT
  Age: 84 Year
  Sex: Female

DRUGS (2)
  1. TERIPARATIDE [Suspect]
     Active Substance: TERIPARATIDE
     Indication: Osteoporosis
     Dosage: UNK UNK, DAILY
     Route: 058
     Dates: start: 20220315
  2. VITAMIN D NOS [Concomitant]
     Active Substance: VITAMIN D NOS
     Indication: Product used for unknown indication

REACTIONS (6)
  - Heart rate increased [Recovered/Resolved]
  - Cardiac valve disease [Not Recovered/Not Resolved]
  - Atrial fibrillation [Not Recovered/Not Resolved]
  - Dizziness [Not Recovered/Not Resolved]
  - Listless [Not Recovered/Not Resolved]
  - Fatigue [Not Recovered/Not Resolved]
